FAERS Safety Report 19736001 (Version 1)
Quarter: 2021Q3

REPORT INFORMATION
  Report Type: Report from Study
  Country: IT (occurrence: IT)
  Receive Date: 20210823
  Receipt Date: 20210823
  Transmission Date: 20211014
  Serious: Yes (Hospitalization)
  Sender: FDA-Public Use
  Company Number: IT-MYLANLABS-2021M1053252

PATIENT
  Age: 73 Year
  Sex: Male

DRUGS (2)
  1. REPAGLINIDE. [Suspect]
     Active Substance: REPAGLINIDE
     Indication: TYPE 2 DIABETES MELLITUS
     Dosage: 1 MILLIGRAM, QD
     Route: 048
     Dates: start: 20151209, end: 20210115
  2. ACARPHAGE [Interacting]
     Active Substance: ACARBOSE
     Indication: TYPE 2 DIABETES MELLITUS
     Dosage: 2 DOSAGE FORM, QD
     Route: 048
     Dates: start: 20151209, end: 20210115

REACTIONS (3)
  - Fall [Recovering/Resolving]
  - Drug interaction [Recovering/Resolving]
  - Hypoglycaemic coma [Recovering/Resolving]

NARRATIVE: CASE EVENT DATE: 20210115
